FAERS Safety Report 7146555-8 (Version None)
Quarter: 2010Q4

REPORT INFORMATION
  Report Type: 
  Country: None (occurrence: None)
  Receive Date: 20101208
  Receipt Date: 20100806
  Transmission Date: 20110411
  Serious: No
  Sender: FDA-Public Use
  Company Number: US-ABBOTT-10P-163-0663113-00

PATIENT
  Sex: Female
  Weight: 72.64 kg

DRUGS (3)
  1. ERY-TAB [Suspect]
     Indication: SINUSITIS
     Dates: start: 20100726
  2. ERY-TAB [Suspect]
     Indication: TOOTH ABSCESS
  3. NEXIUM [Concomitant]
     Indication: PROPHYLAXIS AGAINST GASTROINTESTINAL ULCER

REACTIONS (3)
  - ABDOMINAL DISCOMFORT [None]
  - DRUG ADMINISTRATION ERROR [None]
  - DRUG INEFFECTIVE [None]
